FAERS Safety Report 6156507-2 (Version None)
Quarter: 2009Q2

REPORT INFORMATION
  Report Type: 
  Country: None (occurrence: None)
  Receive Date: 20090413
  Receipt Date: 20090127
  Transmission Date: 20091009
  Serious: Yes (Other)
  Sender: FDA-Public Use
  Company Number: OPIR20090005

PATIENT
  Age: 52 Year
  Sex: Male

DRUGS (1)
  1. OPANA [Suspect]
     Indication: PAIN

REACTIONS (3)
  - DRUG ABUSE [None]
  - DRUG DEPENDENCE [None]
  - WRONG TECHNIQUE IN DRUG USAGE PROCESS [None]
